FAERS Safety Report 14695385 (Version 2)
Quarter: 2018Q1

REPORT INFORMATION
  Report Type: Spontaneous
  Country: CZ (occurrence: CZ)
  Receive Date: 20180329
  Receipt Date: 20180329
  Transmission Date: 20180509
  Serious: Yes (Other)
  Sender: FDA-Public Use
  Company Number: CZ-VIFOR (INTERNATIONAL) INC.-VIT-2018-02993

PATIENT
  Age: 38 Year
  Sex: Female

DRUGS (4)
  1. VELPHORO [Suspect]
     Active Substance: FERRIC OXYHYDROXIDE
     Indication: ANAEMIA
     Dates: start: 1994
  2. MALTOFER [Suspect]
     Active Substance: IRON POLYMALTOSE
     Indication: ANAEMIA
     Dates: start: 1994
  3. VENOFER [Suspect]
     Active Substance: IRON SUCROSE
     Indication: ANAEMIA
     Dates: start: 1994
  4. FERINJECT [Suspect]
     Active Substance: FERRIC CARBOXYMALTOSE
     Indication: ANAEMIA
     Dates: start: 1994

REACTIONS (4)
  - Vomiting [Unknown]
  - Diarrhoea [Unknown]
  - Arthralgia [Unknown]
  - Gastric ulcer [Unknown]

NARRATIVE: CASE EVENT DATE: 1994
